FAERS Safety Report 9269206 (Version 4)
Quarter: 2013Q4

REPORT INFORMATION
  Report Type: Spontaneous
  Country: US (occurrence: US)
  Receive Date: 20130503
  Receipt Date: 20131106
  Transmission Date: 20140711
  Serious: No
  Sender: FDA-Public Use
  Company Number: US-PFIZER INC-2013132521

PATIENT
  Age: 57 Year
  Sex: Male
  Weight: 83.9 kg

DRUGS (5)
  1. SUTENT [Suspect]
     Indication: RENAL CELL CARCINOMA
     Dosage: 50 MG, 1X/DAY
     Route: 048
     Dates: start: 20130412
  2. ATENOLOL [Concomitant]
     Indication: HYPERTENSION
     Dosage: UNK
  3. ATENOLOL [Concomitant]
     Dosage: 25 MG, 1X/DAY
  4. VALIUM [Concomitant]
     Dosage: UNK
  5. OXYCODONE [Concomitant]
     Dosage: UNK

REACTIONS (5)
  - Fatigue [Recovered/Resolved]
  - Diarrhoea [Recovered/Resolved]
  - Stomatitis [Recovered/Resolved]
  - Oral pain [Recovered/Resolved]
  - Insomnia [Unknown]
